FAERS Safety Report 22539197 (Version 1)
Quarter: 2023Q2

REPORT INFORMATION
  Report Type: Spontaneous
  Country: HU (occurrence: HU)
  Receive Date: 20230609
  Receipt Date: 20230609
  Transmission Date: 20230722
  Serious: Yes (Other)
  Sender: FDA-Public Use
  Company Number: None

PATIENT
  Age: 65 Year
  Sex: Female

DRUGS (9)
  1. METHOTREXATE [Suspect]
     Active Substance: METHOTREXATE
     Indication: Rheumatoid arthritis
     Dates: start: 2019
  2. INTERFERON ALFA-2A [Suspect]
     Active Substance: INTERFERON ALFA-2A
     Dates: start: 2018, end: 2019
  3. APREPITANT [Concomitant]
     Active Substance: APREPITANT
  4. BRENTUXIMAB VEDOTIN [Concomitant]
     Active Substance: BRENTUXIMAB VEDOTIN
     Indication: Cutaneous T-cell lymphoma
     Dosage: 16-CYCLES
     Dates: start: 202001, end: 202103
  5. METHYLPREDNISOLONE [Concomitant]
     Active Substance: METHYLPREDNISOLONE
  6. METHOTREXATE [Suspect]
     Active Substance: METHOTREXATE
     Indication: Rheumatoid arthritis
     Dosage: RECEIVE ECP THERAPY SUPPLEMENTED BY METHOTREXATE
     Dates: start: 202104
  7. METHOTREXATE [Suspect]
     Active Substance: METHOTREXATE
     Indication: Rheumatoid arthritis
     Dosage: 15 MG, QW
     Dates: start: 201910
  8. METHOTREXATE [Suspect]
     Active Substance: METHOTREXATE
     Indication: Rheumatoid arthritis
     Dates: start: 2015, end: 2019
  9. METHOTREXATE [Suspect]
     Active Substance: METHOTREXATE
     Indication: Rheumatoid arthritis
     Dosage: 20 MG FOR 4 YEARS
     Dates: start: 2015, end: 2019

REACTIONS (4)
  - Gamma-glutamyltransferase increased [Recovered/Resolved]
  - Pruritus [Unknown]
  - Drug ineffective for unapproved indication [Unknown]
  - Cutaneous T-cell lymphoma [Unknown]

NARRATIVE: CASE EVENT DATE: 20190101
